FAERS Safety Report 8242151-X (Version None)
Quarter: 2012Q1

REPORT INFORMATION
  Report Type: 
  Country: None (occurrence: None)
  Receive Date: 20120314
  Receipt Date: 20110711
  Transmission Date: 20120608
  Serious: No
  Sender: FDA-Public Use
  Company Number: PHHY2011US62091

PATIENT
  Sex: Male

DRUGS (1)
  1. FANAPT [Suspect]
     Dosage: 8 MG, BID, ORAL
     Route: 048

REACTIONS (5)
  - DYSKINESIA [None]
  - FEELING ABNORMAL [None]
  - HYPOAESTHESIA [None]
  - HYPERACUSIS [None]
  - PARAESTHESIA [None]
